FAERS Safety Report 8113127-8 (Version None)
Quarter: 2012Q1

REPORT INFORMATION
  Report Type: 
  Country: None (occurrence: None)
  Receive Date: 20120203
  Receipt Date: 20120123
  Transmission Date: 20120608
  Serious: Yes (Other)
  Sender: FDA-Public Use
  Company Number: AU-ELI_LILLY_AND_COMPANY-AU201201008380

PATIENT

DRUGS (4)
  1. OXALIPLATIN [Concomitant]
     Indication: ADENOCARCINOMA PANCREAS
     Dosage: 10 MG/M2, ON DAYS 2 AND 16 OF EACH 28 DAY CYCLE
     Route: 042
  2. THERAPEUTIC RADIOPHARMACEUTICALS [Concomitant]
     Indication: ADENOCARCINOMA PANCREAS
     Dosage: 54 GY, 5 DAYS A WEEK FOR 6 WEEKS
  3. GEMCITABINE HYDROCHLORIDE [Suspect]
     Indication: ADENOCARCINOMA PANCREAS
     Dosage: 1000 MG/M2, ON DAYS 1 AND 15 OF EACH 28 DAY CYCLE
     Route: 042
  4. FLUOROURACIL [Concomitant]
     Indication: ADENOCARCINOMA PANCREAS
     Dosage: 200 MG/M2, 5 DAYS A WEEK FOR 6 WEEKS

REACTIONS (3)
  - DECREASED APPETITE [None]
  - NAUSEA [None]
  - WEIGHT DECREASED [None]
